FAERS Safety Report 4966503-6 (Version None)
Quarter: 2006Q2

REPORT INFORMATION
  Report Type: 
  Country: None (occurrence: None)
  Receive Date: 20060407
  Receipt Date: 20060330
  Transmission Date: 20061013
  Serious: Yes (Hospitalization)
  Sender: FDA-Public Use
  Company Number: FR-SANOFI-SYNTHELABO-A01200602475

PATIENT
  Age: 70 Year
  Sex: Male

DRUGS (1)
  1. LEUPROLIDE [Suspect]
     Indication: PROSTATE CANCER METASTATIC
     Route: 058

REACTIONS (5)
  - DIPLOPIA [None]
  - HEMIANOPIA HETERONYMOUS [None]
  - IIIRD NERVE PARALYSIS [None]
  - PITUITARY TUMOUR BENIGN [None]
  - VISUAL DISTURBANCE [None]
